FAERS Safety Report 10102975 (Version 1)
Quarter: 2014Q2

REPORT INFORMATION
  Report Type: Spontaneous
  Country: US (occurrence: US)
  Receive Date: 20140424
  Receipt Date: 20140424
  Transmission Date: 20141212
  Serious: No
  Sender: FDA-Public Use
  Company Number: US-BRISTOL-MYERS SQUIBB COMPANY-20028304

PATIENT
  Age: 71 Year
  Sex: Female
  Weight: 54.42 kg

DRUGS (7)
  1. ELIQUIS [Suspect]
     Indication: CEREBROVASCULAR ACCIDENT
     Dosage: SPLITTING THEM IN HALF?TABS
  2. ASPIRIN [Concomitant]
     Indication: HEADACHE
  3. VITAMINS [Concomitant]
  4. IODINE [Concomitant]
  5. VITAMIN D3 [Concomitant]
     Dosage: 1 DF=2,000 UNITS
  6. INDERAL [Concomitant]
  7. FLAXSEED OIL [Concomitant]

REACTIONS (5)
  - Headache [Unknown]
  - Asthenia [Unknown]
  - Musculoskeletal pain [Unknown]
  - Neck pain [Unknown]
  - Wrong technique in drug usage process [Unknown]
